FAERS Safety Report 4449714-8 (Version None)
Quarter: 2004Q3

REPORT INFORMATION
  Report Type: 
  Country: None (occurrence: None)
  Receive Date: 20040913
  Receipt Date: 20040831
  Transmission Date: 20050211
  Serious: Yes (Death, Life-Threatening, Other)
  Sender: FDA-Public Use
  Company Number: 2004231509MX

PATIENT
  Age: 40 Year
  Sex: Male
  Weight: 40 kg

DRUGS (3)
  1. LINEZOLID (LINEZOLID)SOLUTION, STERILE [Suspect]
     Indication: PNEUMONIA
     Dosage: 600 MG, BID, IV
     Route: 042
     Dates: start: 20040818, end: 20040822
  2. TIENAM (IMIPENEM, CILASTIN) [Concomitant]
  3. VFEND [Concomitant]

REACTIONS (7)
  - BLOOD CHLORIDE INCREASED [None]
  - BLOOD CULTURE POSITIVE [None]
  - BLOOD SODIUM INCREASED [None]
  - DIABETES INSIPIDUS [None]
  - HYPOKALAEMIA [None]
  - PSEUDOMONAS INFECTION [None]
  - THROMBOCYTOPENIA [None]
